FAERS Safety Report 4424150-9 (Version None)
Quarter: 2004Q3

REPORT INFORMATION
  Report Type: 
  Country: None (occurrence: None)
  Receive Date: 20040812
  Receipt Date: 20040226
  Transmission Date: 20050211
  Serious: Yes (Hospitalization, Other)
  Sender: FDA-Public Use
  Company Number: PHFR2004IE01212

PATIENT
  Age: 22 Year
  Sex: Male

DRUGS (3)
  1. CLOZARIL [Suspect]
     Indication: SCHIZOPHRENIA
     Dosage: 250MG/DAY
     Route: 048
     Dates: start: 20020528
  2. LUSTRAL [Concomitant]
     Dosage: 100MG/DAY
     Route: 048
     Dates: start: 20010901
  3. KEMADRIN [Concomitant]
     Dosage: 5 MG, BID
     Route: 048
     Dates: start: 20030101

REACTIONS (7)
  - BLOOD GLUCOSE INCREASED [None]
  - DIABETES MELLITUS [None]
  - ENURESIS [None]
  - IRON DEFICIENCY ANAEMIA [None]
  - POLYDIPSIA [None]
  - POLYURIA [None]
  - WEIGHT INCREASED [None]
